FAERS Safety Report 5732156-2 (Version None)
Quarter: 2008Q2

REPORT INFORMATION
  Report Type: 
  Country: None (occurrence: None)
  Receive Date: 20080508
  Receipt Date: 20080429
  Transmission Date: 20081010
  Serious: Yes (Hospitalization)
  Sender: FDA-Public Use
  Company Number: US-AMGEN-KDL275011

PATIENT
  Sex: Male

DRUGS (12)
  1. EPOGEN [Suspect]
     Indication: DIALYSIS
     Route: 042
     Dates: start: 20070102
  2. EPOGEN [Suspect]
  3. AMLODIPINE [Concomitant]
  4. CLONIDINE [Concomitant]
  5. OMEPRAZOLE [Concomitant]
  6. ISOSORBIDE DINITRATE [Concomitant]
  7. LISINOPRIL [Concomitant]
     Route: 048
  8. REGLAN [Concomitant]
  9. LOPRESSOR [Concomitant]
  10. CALCIUM [Concomitant]
  11. VENOFER [Concomitant]
  12. HECTORAL [Concomitant]

REACTIONS (1)
  - APLASIA PURE RED CELL [None]
